FAERS Safety Report 4931608-2 (Version None)
Quarter: 2006Q1

REPORT INFORMATION
  Report Type: 
  Country: None (occurrence: None)
  Receive Date: 20060106
  Receipt Date: 20051031
  Transmission Date: 20060701
  Serious: No
  Sender: FDA-Public Use
  Company Number: 200512379BWH

PATIENT
  Age: 92 Year
  Sex: Male

DRUGS (5)
  1. LEVITRA [Suspect]
     Dosage: 20 MG, ONCE, ORAL
     Route: 048
     Dates: start: 20051030
  2. CARTIA XT [Concomitant]
  3. ZETIA [Concomitant]
  4. PROSCAR [Concomitant]
  5. PLAVIX [Concomitant]

REACTIONS (1)
  - ERECTILE DYSFUNCTION [None]
